FAERS Safety Report 5786281-0 (Version None)
Quarter: 2008Q2

REPORT INFORMATION
  Report Type: 
  Country: None (occurrence: None)
  Receive Date: 20080624
  Receipt Date: 20080617
  Transmission Date: 20081010
  Serious: Yes (Congenital Anomaly, Other)
  Sender: FDA-Public Use
  Company Number: DE-PFIZER INC-2008051196

PATIENT

DRUGS (1)
  1. ZELDOX (CAPSULES) [Suspect]

REACTIONS (2)
  - ADRENOGENITAL SYNDROME [None]
  - DRUG EXPOSURE DURING PREGNANCY [None]
